FAERS Safety Report 10194730 (Version 2)
Quarter: 2014Q2

REPORT INFORMATION
  Report Type: Spontaneous
  Country: ES (occurrence: ES)
  Receive Date: 20140526
  Receipt Date: 20140616
  Transmission Date: 20141212
  Serious: Yes (Other)
  Sender: FDA-Public Use
  Company Number: ES-BRISTOL-MYERS SQUIBB COMPANY-20789947

PATIENT
  Age: 5 Decade
  Sex: Male

DRUGS (4)
  1. BYETTA PEN DISPOSABLE [Suspect]
     Indication: TYPE 1 DIABETES MELLITUS
     Dosage: DOSE INCREASED FROM 5MCG TO 10MCG
     Dates: start: 2013
  2. METFORMINE [Concomitant]
  3. DILTIAZEM HCL [Concomitant]
  4. NOCTAMID [Concomitant]

REACTIONS (6)
  - Drug dose omission [Not Recovered/Not Resolved]
  - Hunger [Not Recovered/Not Resolved]
  - Product quality issue [Not Recovered/Not Resolved]
  - Vomiting [Unknown]
  - Nausea [Unknown]
  - Off label use [Unknown]
